FAERS Safety Report 7483833-7 (Version None)
Quarter: 2011Q2

REPORT INFORMATION
  Report Type: 
  Country: None (occurrence: None)
  Receive Date: 20110517
  Receipt Date: 20110406
  Transmission Date: 20111010
  Serious: Yes (Hospitalization, Other)
  Sender: FDA-Public Use
  Company Number: US-BAYER-201036228NA

PATIENT
  Age: 26 Year
  Sex: Female
  Weight: 94.331 kg

DRUGS (12)
  1. YASMIN [Suspect]
     Indication: CONTRACEPTION
     Dosage: UNK
     Dates: start: 20010101, end: 20100101
  2. AMBIEN [Concomitant]
     Indication: SLEEP DISORDER
  3. SUBOXONE [Concomitant]
  4. VISTARIL [HYDROXYZINE HYDROCHLORIDE] [Concomitant]
  5. TRAZODONE HCL [Concomitant]
     Indication: BIPOLAR DISORDER
  6. LORAZEPAM [Concomitant]
     Indication: SLEEP DISORDER
  7. EFFEXOR [Concomitant]
  8. LEXAPRO [Concomitant]
     Indication: BORDERLINE PERSONALITY DISORDER
  9. DROSPIRENONE AND ETHINYL ESTRADIOL [Suspect]
     Indication: CONTRACEPTION
     Dates: start: 20010101, end: 20100101
  10. LAMICTAL [Concomitant]
     Indication: BORDERLINE PERSONALITY DISORDER
     Dosage: 200 MG, QD
  11. COLACE [Concomitant]
     Dosage: 100 MG, TID
  12. GEODON [Concomitant]
     Indication: MENTAL DISORDER

REACTIONS (6)
  - CHOLELITHIASIS [None]
  - ABDOMINAL PAIN [None]
  - DIARRHOEA [None]
  - GALLBLADDER DISORDER [None]
  - CHOLECYSTITIS CHRONIC [None]
  - DYSPEPSIA [None]
